FAERS Safety Report 9357281 (Version 1)
Quarter: 2013Q2

REPORT INFORMATION
  Report Type: Spontaneous
  Country: IL (occurrence: IL)
  Receive Date: 20130620
  Receipt Date: 20130620
  Transmission Date: 20140414
  Serious: Yes (Disabling)
  Sender: FDA-Public Use
  Company Number: IL-JNJFOC-20130608417

PATIENT
  Age: 65 Year
  Sex: Male

DRUGS (7)
  1. PREZISTA [Suspect]
     Indication: HIV INFECTION
     Route: 048
  2. RITONAVIR [Suspect]
     Indication: HIV INFECTION
     Route: 048
  3. DIDANOSINE [Suspect]
     Indication: HIV INFECTION
     Route: 065
  4. ABACAVIR [Suspect]
     Indication: HIV INFECTION
     Route: 065
  5. ETRAVIRINE [Concomitant]
     Indication: HIV INFECTION
     Route: 065
  6. EMTRICITABINE W/TENOFOVIR [Concomitant]
     Indication: HIV INFECTION
     Route: 065
  7. RALTEGRAVIR [Concomitant]
     Indication: HIV INFECTION
     Route: 065

REACTIONS (1)
  - Demyelinating polyneuropathy [Recovered/Resolved]
